FAERS Safety Report 4620070-5 (Version None)
Quarter: 2005Q1

REPORT INFORMATION
  Report Type: 
  Country: None (occurrence: None)
  Receive Date: 20050323
  Receipt Date: 20050323
  Transmission Date: 20050727
  Serious: Yes (Congenital Anomaly)
  Sender: FDA-Public Use
  Company Number: None

PATIENT
  Age: 61 Year
  Sex: Male
  Weight: 96.6162 kg

DRUGS (10)
  1. GABITRIL [Suspect]
     Indication: BACK PAIN
     Dosage: 2MG   MORNING, NIGHT    ORAL
     Route: 048
     Dates: start: 20050317, end: 20050321
  2. GABITRIL [Suspect]
     Indication: FATIGUE
     Dosage: 2MG   MORNING, NIGHT    ORAL
     Route: 048
     Dates: start: 20050317, end: 20050321
  3. GABITRIL [Suspect]
     Indication: INSOMNIA
     Dosage: 2MG   MORNING, NIGHT    ORAL
     Route: 048
     Dates: start: 20050317, end: 20050321
  4. GABITRIL [Suspect]
     Indication: SOMNOLENCE
     Dosage: 2MG   MORNING, NIGHT    ORAL
     Route: 048
     Dates: start: 20050317, end: 20050321
  5. GABITRIL [Suspect]
     Dosage: 4MG   NA   ORAL
     Route: 048
  6. MORPHINE [Concomitant]
  7. OXYCODONE [Concomitant]
  8. FLEXERALL [Concomitant]
  9. FLOMAX [Concomitant]
  10. CEPHALFEX [Concomitant]

REACTIONS (5)
  - ANXIETY [None]
  - FATIGUE [None]
  - HYPERSOMNIA [None]
  - NERVOUSNESS [None]
  - SOMNOLENCE [None]
